FAERS Safety Report 7511795-2 (Version None)
Quarter: 2011Q2

REPORT INFORMATION
  Report Type: 
  Country: None (occurrence: None)
  Receive Date: 20110531
  Receipt Date: 20110412
  Transmission Date: 20111010
  Serious: No
  Sender: FDA-Public Use
  Company Number: US-JNJFOC-20110406080

PATIENT
  Sex: Male

DRUGS (2)
  1. INVEGA [Suspect]
     Route: 048
     Dates: start: 20100821
  2. INVEGA [Suspect]
     Indication: PRODUCT USED FOR UNKNOWN INDICATION
     Route: 048
     Dates: start: 20100911, end: 20100921

REACTIONS (3)
  - PRURITUS [None]
  - DRUG INEFFECTIVE [None]
  - ERYTHEMA [None]
